FAERS Safety Report 7685117-0 (Version None)
Quarter: 2011Q3

REPORT INFORMATION
  Report Type: 
  Country: None (occurrence: None)
  Receive Date: 20110816
  Receipt Date: 20110810
  Transmission Date: 20111222
  Serious: Yes (Hospitalization)
  Sender: FDA-Public Use
  Company Number: FR-BRISTOL-MYERS SQUIBB COMPANY-15966914

PATIENT
  Age: 74 Year
  Sex: Male

DRUGS (1)
  1. HYDREA [Suspect]
     Indication: POLYCYTHAEMIA
     Route: 048
     Dates: start: 20110624, end: 20110726

REACTIONS (1)
  - INTERSTITIAL LUNG DISEASE [None]
